FAERS Safety Report 5896559-8 (Version None)
Quarter: 2008Q3

REPORT INFORMATION
  Report Type: 
  Country: None (occurrence: None)
  Receive Date: 20080924
  Receipt Date: 20070801
  Transmission Date: 20090109
  Serious: No
  Sender: FDA-Public Use
  Company Number: US-BAYER-200712575BWH

PATIENT
  Age: 59 Year
  Sex: Male

DRUGS (3)
  1. AVELOX [Suspect]
     Indication: PREOPERATIVE CARE
     Route: 048
     Dates: start: 20070730
  2. ZYMAR OPHTHALMIC SOLUTION [Concomitant]
     Route: 047
  3. PREDNISOLONE OPTHALMIC SOLUTION 1% [Concomitant]
     Route: 047

REACTIONS (12)
  - BODY TEMPERATURE INCREASED [None]
  - CHILLS [None]
  - COLD SWEAT [None]
  - DIARRHOEA [None]
  - EYELIDS PRURITUS [None]
  - HYPERSENSITIVITY [None]
  - NAUSEA [None]
  - PRURITUS [None]
  - PRURITUS GENERALISED [None]
  - RASH MACULAR [None]
  - RESPIRATORY TRACT CONGESTION [None]
  - VOMITING [None]
